FAERS Safety Report 7641147-6 (Version None)
Quarter: 2011Q3

REPORT INFORMATION
  Report Type: 
  Country: None (occurrence: None)
  Receive Date: 20110728
  Receipt Date: 20110714
  Transmission Date: 20111222
  Serious: Yes (Other)
  Sender: FDA-Public Use
  Company Number: PHEH2008US00988

PATIENT
  Sex: Female

DRUGS (38)
  1. CALTRATE PLUS [Concomitant]
  2. PHENYTOIN SODIUM [Concomitant]
  3. PERIOGARD [Concomitant]
  4. PROTONIX [Concomitant]
  5. TRAZODONE HCL [Concomitant]
  6. AREDIA [Suspect]
     Indication: OSTEOPOROSIS
     Dates: end: 20020101
  7. DIFLUCAN [Concomitant]
  8. PREDNISONE [Concomitant]
  9. PREVACID [Concomitant]
  10. ZOMETA [Suspect]
     Indication: OSTEOPOROSIS
     Dosage: 4 MG, Q3MO
     Route: 042
     Dates: start: 20021021, end: 20061013
  11. LIPITOR [Concomitant]
  12. INDOMETHACIN [Concomitant]
  13. CHLORHEXIDINE GLUCONATE [Concomitant]
  14. MULTI-VITAMINS [Concomitant]
  15. HYDROCORTISONE [Concomitant]
  16. ERYTHROMYCIN [Concomitant]
  17. TYLENOL-500 [Concomitant]
  18. CLINDAMYCIN [Concomitant]
  19. FEMARA [Concomitant]
  20. CARAFATE [Concomitant]
  21. ZOLOFT [Concomitant]
  22. ASTELIN [Concomitant]
     Dosage: 137 UG, BID
     Route: 045
  23. PANTOPRAZOLE [Concomitant]
  24. EFFEXOR XR [Concomitant]
  25. CORRECTOL ^SCHERING-PLOUGH^ [Concomitant]
  26. ALLEGRA [Concomitant]
     Dosage: 180 MG, QD
  27. ASPIRIN [Concomitant]
     Dosage: 325 MG, QD
  28. ATENOLOL [Concomitant]
     Dosage: 25 MG, QD
  29. LOTRISONE [Concomitant]
  30. SEROQUEL [Concomitant]
  31. ZITHROMAX [Concomitant]
  32. OXYCODONE HCL [Concomitant]
  33. CELEBREX [Concomitant]
  34. MIRTAZAPINE [Concomitant]
  35. CELEXA [Concomitant]
  36. TOBRADEX [Concomitant]
  37. ZYRTEC [Concomitant]
  38. WELLBUTRIN [Concomitant]

REACTIONS (56)
  - ANHEDONIA [None]
  - MASS [None]
  - HAEMORRHAGE [None]
  - SCHAMBERG'S DISEASE [None]
  - RASH [None]
  - FATIGUE [None]
  - TINEA CRURIS [None]
  - DEVICE FAILURE [None]
  - CHOLELITHIASIS [None]
  - SPINAL OSTEOARTHRITIS [None]
  - SCIATICA [None]
  - ELECTROCARDIOGRAM ABNORMAL [None]
  - DYSPNOEA [None]
  - DIZZINESS [None]
  - DYSURIA [None]
  - FALL [None]
  - ATROPHIC VULVOVAGINITIS [None]
  - NEOPLASM MALIGNANT [None]
  - OSTEONECROSIS OF JAW [None]
  - PAIN [None]
  - BARRETT'S OESOPHAGUS [None]
  - OSTEOPENIA [None]
  - BACK INJURY [None]
  - FOOT FRACTURE [None]
  - DRUG ERUPTION [None]
  - TREMOR [None]
  - PETECHIAE [None]
  - PRURITUS [None]
  - MUSCULOSKELETAL DISCOMFORT [None]
  - GASTROOESOPHAGEAL REFLUX DISEASE [None]
  - CHEST DISCOMFORT [None]
  - OSTEOARTHRITIS [None]
  - VULVAL DISORDER [None]
  - ANXIETY [None]
  - URINARY TRACT INFECTION [None]
  - ARTHRITIS [None]
  - JOINT SWELLING [None]
  - CATARACT [None]
  - ORTHOSTATIC HYPOTENSION [None]
  - ASTHENIA [None]
  - PAIN IN EXTREMITY [None]
  - ABDOMINAL PAIN UPPER [None]
  - FUNGAL INFECTION [None]
  - CERVICAL MYELOPATHY [None]
  - BALANCE DISORDER [None]
  - SKIN IRRITATION [None]
  - BASAL CELL CARCINOMA [None]
  - TOOTH ABSCESS [None]
  - MACULOPATHY [None]
  - INJURY [None]
  - NEURITIS [None]
  - PARAESTHESIA [None]
  - MYELOPATHY [None]
  - OVARIAN DISORDER [None]
  - EYELID PTOSIS [None]
  - EYE NAEVUS [None]
